FAERS Safety Report 10667715 (Version 1)
Quarter: 2014Q4

REPORT INFORMATION
  Report Type: Spontaneous
  Country: ES (occurrence: ES)
  Receive Date: 20141222
  Receipt Date: 20141222
  Transmission Date: 20150529
  Serious: Yes (Life-Threatening, Hospitalization)
  Sender: FDA-Public Use
  Company Number: ES-BANPHARM-20143308

PATIENT
  Age: 22 Year
  Sex: Male

DRUGS (4)
  1. ACETAMINOPHEN. [Suspect]
     Active Substance: ACETAMINOPHEN
     Indication: MYALGIA
     Dosage: 500 MG,
  2. ALGIDOL [Suspect]
     Active Substance: ACETAMINOPHEN\ASCORBIC ACID\CODEINE
     Indication: INFLUENZA
  3. IBUPROFEN UNKNOWN PRODUCT [Suspect]
     Active Substance: IBUPROFEN
     Indication: MYALGIA
     Dosage: 1200 MG,
     Route: 048
  4. IBUPROFEN UNKNOWN PRODUCT [Suspect]
     Active Substance: IBUPROFEN
     Route: 048

REACTIONS (7)
  - Hepatic encephalopathy [Recovered/Resolved]
  - Drug reaction with eosinophilia and systemic symptoms [Recovered/Resolved]
  - Hypotension [None]
  - Acute hepatic failure [Recovered/Resolved]
  - Pleural effusion [Recovered/Resolved]
  - Liver transplant [None]
  - Metabolic acidosis [Recovered/Resolved]
